FAERS Safety Report 10204425 (Version 5)
Quarter: 2016Q3

REPORT INFORMATION
  Report Type: Spontaneous
  Country: US (occurrence: US)
  Receive Date: 20140529
  Receipt Date: 20160908
  Transmission Date: 20161109
  Serious: Yes (Hospitalization, Disabling, Other)
  Sender: FDA-Public Use
  Company Number: US-009507513-1405USA011536

PATIENT
  Sex: Female

DRUGS (7)
  1. ALENDRONATE SODIUM. [Suspect]
     Active Substance: ALENDRONATE SODIUM
     Indication: OSTEOPOROSIS
     Dosage: 70 MG, QW
     Route: 048
     Dates: start: 20080307, end: 20120323
  2. CENTRUM SILVER [Concomitant]
     Active Substance: MINERALS\VITAMINS
     Indication: ROUTINE HEALTH MAINTENANCE
     Dosage: 1 DF, QD
     Route: 048
     Dates: start: 2006
  3. AVANDIA [Concomitant]
     Active Substance: ROSIGLITAZONE MALEATE
     Indication: TYPE 2 DIABETES MELLITUS
     Dosage: UNK, UNKNOWN
     Route: 065
     Dates: start: 1990
  4. FOSAMAX [Suspect]
     Active Substance: ALENDRONATE SODIUM
     Indication: OSTEOPOROSIS
     Dosage: 70 MG, QW
     Route: 048
     Dates: end: 200803
  5. METOPROLOL. [Concomitant]
     Active Substance: METOPROLOL
     Indication: HYPERTENSION
     Dosage: UNK UNK, UNKNOWN
     Route: 065
     Dates: start: 200708, end: 201203
  6. FOSAMAX [Suspect]
     Active Substance: ALENDRONATE SODIUM
     Indication: PROPHYLAXIS
     Dosage: 10 MG, QD
     Route: 048
     Dates: start: 19980625
  7. ALENDRONATE SODIUM. [Suspect]
     Active Substance: ALENDRONATE SODIUM
     Indication: OSTEOPOROSIS
     Dosage: 70 MG, UNKNOWN
     Route: 048
     Dates: start: 20080307, end: 201009

REACTIONS (4)
  - Post procedural haematoma [Unknown]
  - Osteoporosis [Not Recovered/Not Resolved]
  - Oedema peripheral [Unknown]
  - Femur fracture [Recovered/Resolved]

NARRATIVE: CASE EVENT DATE: 20120405
